FAERS Safety Report 4796658-8 (Version None)
Quarter: 2005Q4

REPORT INFORMATION
  Report Type: 
  Country: None (occurrence: None)
  Receive Date: 20051013
  Receipt Date: 20051003
  Transmission Date: 20060501
  Serious: Yes (Other)
  Sender: FDA-Public Use
  Company Number: US-JNJFOC-20050703354

PATIENT
  Sex: Female
  Weight: 78.93 kg

DRUGS (19)
  1. REMICADE [Suspect]
     Route: 042
  2. REMICADE [Suspect]
     Route: 042
  3. REMICADE [Suspect]
     Route: 042
  4. REMICADE [Suspect]
     Route: 042
  5. REMICADE [Suspect]
     Indication: CROHN'S DISEASE
     Dosage: FIRST INFUSION
     Route: 042
  6. FLAGYL [Concomitant]
     Indication: CROHN'S DISEASE
     Dosage: DOSE = ^500^
     Route: 048
  7. COLAZAL [Concomitant]
     Indication: CROHN'S DISEASE
     Dosage: DOSE = ^250^
     Route: 048
  8. 6 MP [Concomitant]
     Indication: CROHN'S DISEASE
     Dosage: DOSE = ^100^
     Route: 048
  9. FOLIC ACID [Concomitant]
  10. 5-ASA [Concomitant]
  11. CIPRO [Concomitant]
  12. PRENATAL VITAMINS [Concomitant]
  13. PRENATAL VITAMINS [Concomitant]
  14. PRENATAL VITAMINS [Concomitant]
  15. PRENATAL VITAMINS [Concomitant]
  16. PRENATAL VITAMINS [Concomitant]
  17. PRENATAL VITAMINS [Concomitant]
  18. PRENATAL VITAMINS [Concomitant]
  19. PRENATAL VITAMINS [Concomitant]

REACTIONS (2)
  - ABORTION SPONTANEOUS [None]
  - DRUG EXPOSURE DURING PREGNANCY [None]
